FAERS Safety Report 9052886 (Version 1)
Quarter: 2013Q1

REPORT INFORMATION
  Report Type: Spontaneous
  Country: FR (occurrence: FR)
  Receive Date: 20130207
  Receipt Date: 20130207
  Transmission Date: 20140127
  Serious: Yes (Death, Hospitalization, Other)
  Sender: FDA-Public Use
  Company Number: FR-BRISTOL-MYERS SQUIBB COMPANY-17343815

PATIENT
  Age: 45 Year
  Sex: Male

DRUGS (6)
  1. EUPANTOL [Concomitant]
  2. HYDROCORTISONE [Concomitant]
  3. SEROPRAM [Concomitant]
  4. CALCIPARINE [Concomitant]
  5. LYSODREN [Suspect]
     Indication: ADRENOCORTICAL CARCINOMA
     Dosage: 1DF=3TABS/D?INTERRUPTED:21DEC11?RESTARTED:JAN12(6TAB/D)?D^CED:1FEB12
     Route: 048
     Dates: end: 20120201
  6. TRANXENE [Concomitant]

REACTIONS (16)
  - Encephalopathy [Fatal]
  - Aggression [Unknown]
  - Confusional state [Unknown]
  - Agitation [Unknown]
  - Grand mal convulsion [Unknown]
  - Pyramidal tract syndrome [Unknown]
  - Adrenal insufficiency [Unknown]
  - Renal failure [Unknown]
  - Altered state of consciousness [Unknown]
  - Asthenia [Unknown]
  - Hyperthyroidism [Unknown]
  - Hypernatraemia [Unknown]
  - Pyrexia [Unknown]
  - Overdose [Unknown]
  - Hyperkalaemia [Unknown]
  - Fall [Unknown]
